FAERS Safety Report 11486817 (Version 2)
Quarter: 2015Q4

REPORT INFORMATION
  Report Type: Spontaneous
  Country: US (occurrence: US)
  Receive Date: 20150910
  Receipt Date: 20151120
  Transmission Date: 20160304
  Serious: Yes (Death)
  Sender: FDA-Public Use
  Company Number: US-PFIZER INC-2015291658

PATIENT
  Age: 73 Year
  Sex: Male
  Weight: 66 kg

DRUGS (10)
  1. PREDNISONE. [Concomitant]
     Active Substance: PREDNISONE
     Indication: APPETITE DISORDER
     Dosage: 5 MG, DAILY
     Dates: start: 2015
  2. HYDROCHLOROTHIAZIDE. [Concomitant]
     Active Substance: HYDROCHLOROTHIAZIDE
     Indication: BLOOD PRESSURE MEASUREMENT
     Dosage: 25 MG (1 DF) A DAY
     Dates: start: 2013
  3. ASPIRIN. [Concomitant]
     Active Substance: ASPIRIN
     Dosage: LOW DOSE, ONCE A DAY
     Dates: start: 201308
  4. OXYCONTIN [Concomitant]
     Active Substance: OXYCODONE HYDROCHLORIDE
     Dosage: 10 MG, 2X/DAY
     Dates: start: 2014
  5. OXYCODONE [Concomitant]
     Active Substance: OXYCODONE
     Indication: BREAKTHROUGH PAIN
     Dosage: 5 MG, 1-2 TABLETS AS NEEDED; HE ALMOST DID NOT TAKE THIS, IF HE TOOK IT HE JUST TOOK 1
     Dates: start: 2014
  6. AMLODIPINE [Concomitant]
     Active Substance: AMLODIPINE BESYLATE
     Indication: BLOOD PRESSURE MEASUREMENT
     Dosage: 10 MG, 1X/DAY
     Dates: start: 2013
  7. METAMUCIL [Concomitant]
     Active Substance: PLANTAGO SEED
     Dosage: TOOK THIS ONCE IN A WHILE
  8. INLYTA [Suspect]
     Active Substance: AXITINIB
     Indication: RENAL CANCER
     Dosage: 10 MG, 2X/DAY
     Route: 048
     Dates: start: 201410, end: 20150816
  9. DIFENOXIN ATROPINE [Concomitant]
     Indication: DIARRHOEA
     Dosage: 1 TABLET, 4X/DAY AS NEEDED
     Dates: start: 2015
  10. METOPROLOL TARTRATE. [Concomitant]
     Active Substance: METOPROLOL TARTRATE
     Indication: HYPERTENSION
     Dosage: 25 MG (1/2 TABLET) TWICE DAILY
     Dates: start: 2015

REACTIONS (9)
  - Fatigue [Unknown]
  - Disease progression [Fatal]
  - Diarrhoea [Unknown]
  - Decreased appetite [Unknown]
  - Dyspepsia [Unknown]
  - Renal cancer [Fatal]
  - Confusional state [Unknown]
  - Muscular weakness [Unknown]
  - Pruritus [Unknown]
